FAERS Safety Report 21684946 (Version 2)
Quarter: 2022Q4

REPORT INFORMATION
  Report Type: Spontaneous
  Country: DE (occurrence: DE)
  Receive Date: 20221205
  Receipt Date: 20221214
  Transmission Date: 20230113
  Serious: Yes (Death, Other)
  Sender: FDA-Public Use
  Company Number: DE-CELLTRION INC.-2022DE020299

PATIENT

DRUGS (13)
  1. RITUXIMAB [Suspect]
     Active Substance: RITUXIMAB
     Indication: Lymphoma
     Dosage: UNK
  2. RITUXIMAB [Suspect]
     Active Substance: RITUXIMAB
     Indication: Diffuse large B-cell lymphoma
     Dosage: 6 COURSES OF IMMUNOCHEMOTHERAPY (R-CHOP)
  3. RITUXIMAB [Suspect]
     Active Substance: RITUXIMAB
     Dosage: SIX DOSES OF RITUXIMAB
  4. RITUXIMAB [Suspect]
     Active Substance: RITUXIMAB
     Dosage: SIX CYCLES (R-CHP)
  5. RITUXIMAB [Suspect]
     Active Substance: RITUXIMAB
     Dosage: TWO ADDITIONAL DOSES OF RITUXIMAB
  6. CYCLOPHOSPHAMIDE [Suspect]
     Active Substance: CYCLOPHOSPHAMIDE
     Indication: Diffuse large B-cell lymphoma
     Dosage: 6 COURSES OF IMMUNOCHEMOTHERAPY (R-CHOP)
  7. CYCLOPHOSPHAMIDE [Suspect]
     Active Substance: CYCLOPHOSPHAMIDE
     Dosage: SIX CYCLES (R-CHP)
  8. DOXORUBICIN [Suspect]
     Active Substance: DOXORUBICIN
     Indication: Diffuse large B-cell lymphoma
     Dosage: 6 COURSES OF IMMUNOCHEMOTHERAPY (R-CHOP)
  9. DOXORUBICIN [Suspect]
     Active Substance: DOXORUBICIN
     Dosage: SIX CYCLES (R-CHP)
  10. VINCRISTINE [Suspect]
     Active Substance: VINCRISTINE
     Indication: Diffuse large B-cell lymphoma
     Dosage: 6 COURSES OF IMMUNOCHEMOTHERAPY (R-CHOP)
  11. VINCRISTINE [Suspect]
     Active Substance: VINCRISTINE
     Dosage: SIX CYCLES (R-CHP)
  12. PREDNISOLONE [Suspect]
     Active Substance: PREDNISOLONE
     Indication: Diffuse large B-cell lymphoma
     Dosage: 6 COURSES OF IMMUNOCHEMOTHERAPY (R-CHOP)
  13. PREDNISOLONE [Suspect]
     Active Substance: PREDNISOLONE
     Dosage: SIX CYCLES (R-CHP)

REACTIONS (1)
  - Progressive multifocal leukoencephalopathy [Fatal]
